FAERS Safety Report 5596609-2 (Version None)
Quarter: 2008Q1

REPORT INFORMATION
  Report Type: 
  Country: None (occurrence: None)
  Receive Date: 20080118
  Receipt Date: 20080114
  Transmission Date: 20080703
  Serious: Yes (Death, Other)
  Sender: FDA-Public Use
  Company Number: DE-PFIZER INC-2007101664

PATIENT
  Sex: Male
  Weight: 104 kg

DRUGS (1)
  1. ZELDOX (CAPSULES) [Suspect]
     Indication: SCHIZOAFFECTIVE DISORDER
     Route: 048
     Dates: start: 20030801, end: 20071101

REACTIONS (9)
  - CARDIAC ARREST [None]
  - FAECES DISCOLOURED [None]
  - FOOD CRAVING [None]
  - GAMMA-GLUTAMYLTRANSFERASE INCREASED [None]
  - GLUCOSE TOLERANCE DECREASED [None]
  - HEPATIC ENZYME INCREASED [None]
  - MALAISE [None]
  - MANIA [None]
  - WEIGHT INCREASED [None]
